FAERS Safety Report 6632201-6 (Version None)
Quarter: 2010Q1

REPORT INFORMATION
  Report Type: 
  Country: None (occurrence: None)
  Receive Date: 20100312
  Receipt Date: 20091120
  Transmission Date: 20100710
  Serious: No
  Sender: FDA-Public Use
  Company Number: US-ABBOTT-09P-163-0610456-00

PATIENT
  Age: 50 Year
  Sex: Female

DRUGS (1)
  1. ERY-TAB [Suspect]
     Indication: ROSACEA

REACTIONS (1)
  - FUNGAL INFECTION [None]
